FAERS Safety Report 24076529 (Version 2)
Quarter: 2024Q3

REPORT INFORMATION
  Report Type: Spontaneous
  Country: ES (occurrence: ES)
  Receive Date: 20240711
  Receipt Date: 20240722
  Transmission Date: 20241017
  Serious: Yes (Other)
  Sender: Unknown Manufacturer
  Company Number: ES-KYOWAKIRIN-2018BKK001261

PATIENT
  Age: 78 Year
  Sex: Male

DRUGS (9)
  1. GEMCITABINE [Suspect]
     Active Substance: GEMCITABINE
     Indication: Lung neoplasm malignant
     Dosage: UNK
     Route: 065
     Dates: start: 201801
  2. FENTANYL [Suspect]
     Active Substance: FENTANYL\FENTANYL CITRATE
     Indication: Breakthrough pain
     Dosage: 200 UG, UNK
     Dates: start: 201804
  3. DENOSUMAB [Suspect]
     Active Substance: DENOSUMAB
     Indication: Lung neoplasm malignant
     Dosage: UNK
     Route: 065
     Dates: start: 201801
  4. FENTANYL [Suspect]
     Active Substance: FENTANYL\FENTANYL CITRATE
     Indication: Pain
     Dosage: 150 MICROGRAM, EVERY 3 DAYS
     Route: 065
     Dates: start: 201804
  5. FENTANYL [Suspect]
     Active Substance: FENTANYL\FENTANYL CITRATE
     Dosage: 100 MICROGRAM, EVERY 3 DAYS
     Route: 065
     Dates: start: 2018
  6. FENTANYL [Suspect]
     Active Substance: FENTANYL\FENTANYL CITRATE
     Dosage: 75 MICROGRAM, EVERY 3 DAYS
     Route: 065
  7. DEXAMETHASONE [Suspect]
     Active Substance: DEXAMETHASONE
     Indication: Pain
     Dosage: 4 MICROGRAM, EVERY 12 HRS
     Route: 065
     Dates: start: 201804
  8. DEXAMETHASONE [Suspect]
     Active Substance: DEXAMETHASONE
     Dosage: 4 MILLIGRAM, EVERY 12 HRS
     Route: 065
     Dates: start: 2018
  9. CARBOPLATIN [Suspect]
     Active Substance: CARBOPLATIN
     Indication: Lung neoplasm malignant
     Dosage: UNK
     Route: 065
     Dates: start: 201801

REACTIONS (10)
  - Depressed level of consciousness [Unknown]
  - Neutropenia [Unknown]
  - Anaemia [Unknown]
  - Renal impairment [Unknown]
  - Substance abuse [Unknown]
  - Nausea [Unknown]
  - Overdose [Unknown]
  - Somnolence [Unknown]
  - Vomiting [Unknown]
  - Intentional product misuse [Unknown]

NARRATIVE: CASE EVENT DATE: 20180401
